FAERS Safety Report 12392266 (Version 1)
Quarter: 2016Q2

REPORT INFORMATION
  Report Type: Spontaneous
  Country: US (occurrence: US)
  Receive Date: 20160523
  Receipt Date: 20160523
  Transmission Date: 20160815
  Serious: No
  Sender: FDA-Public Use
  Company Number: US-TEVA-602853USA

PATIENT
  Sex: Male

DRUGS (1)
  1. MYCOPHENOLATE MOFETIL. [Suspect]
     Active Substance: MYCOPHENOLATE MOFETIL
     Dosage: 2000 MILLIGRAM DAILY;
     Route: 048

REACTIONS (4)
  - Foreign body [Recovered/Resolved]
  - Regurgitation [Recovered/Resolved]
  - Product coating issue [Recovered/Resolved]
  - Wrong technique in product usage process [Recovered/Resolved]
